FAERS Safety Report 7391046-2 (Version None)
Quarter: 2011Q2

REPORT INFORMATION
  Report Type: 
  Country: None (occurrence: None)
  Receive Date: 20110404
  Receipt Date: 20110322
  Transmission Date: 20111010
  Serious: Yes (Other)
  Sender: FDA-Public Use
  Company Number: CH-JNJFOC-20110312541

PATIENT
  Age: 58 Year
  Sex: Female
  Weight: 114 kg

DRUGS (15)
  1. DAFALGAN [Concomitant]
  2. TRAMADOL HYDROCHLORIDE [Suspect]
     Indication: PRODUCT USED FOR UNKNOWN INDICATION
     Route: 048
  3. IRFEN [Concomitant]
  4. PHYSIOTENS [Concomitant]
  5. SINGULAIR [Concomitant]
  6. NASONEX [Concomitant]
  7. DUSPATALIN [Concomitant]
  8. SERETIDE [Concomitant]
  9. COAPROVEL [Concomitant]
  10. LANTUS [Concomitant]
  11. ZYRTEC [Concomitant]
  12. METO ZEROK [Concomitant]
  13. METFIN [Concomitant]
  14. NEXIUM [Concomitant]
  15. PRAVALOTIN [Concomitant]

REACTIONS (1)
  - HYPOGLYCAEMIA [None]
